FAERS Safety Report 25761824 (Version 1)
Quarter: 2025Q3

REPORT INFORMATION
  Report Type: Spontaneous
  Country: US (occurrence: US)
  Receive Date: 20250904
  Receipt Date: 20250904
  Transmission Date: 20251020
  Serious: No
  Sender: PFIZER
  Company Number: US-PFIZER INC-202400237230

PATIENT
  Age: 69 Year
  Sex: Male

DRUGS (1)
  1. BOSULIF [Suspect]
     Active Substance: BOSUTINIB MONOHYDRATE
     Dosage: 100MG-TAKE 4 TABS PO DAILY BY MOUTH, SWALLOW WHOLE WITH FOOD
     Route: 048

REACTIONS (2)
  - COVID-19 [Unknown]
  - Brain fog [Unknown]

NARRATIVE: CASE EVENT DATE: 20250101
